FAERS Safety Report 8330978-5 (Version None)
Quarter: 2012Q2

REPORT INFORMATION
  Report Type: 
  Country: None (occurrence: None)
  Receive Date: 20120502
  Receipt Date: 20120404
  Transmission Date: 20120825
  Serious: No
  Sender: FDA-Public Use
  Company Number: US-AMGEN-USASP2011032802

PATIENT
  Age: 54 Year
  Sex: Female
  Weight: 69.841 kg

DRUGS (13)
  1. IRON                               /00023503/ [Concomitant]
  2. MAGNESIUM [Concomitant]
  3. ENZYMES [Concomitant]
  4. DEFLA [Concomitant]
  5. CALCIUM [Concomitant]
  6. VITAMIN D [Concomitant]
     Dosage: 2000 IU, QD
  7. METHOTREXATE [Concomitant]
     Dosage: 25 MG, QWK
  8. MULTIVITAMIN                       /00097801/ [Concomitant]
  9. PROBIOTIC [Concomitant]
     Dosage: UNK UNK, TID
  10. ENBREL [Suspect]
     Indication: RHEUMATOID ARTHRITIS
     Dosage: 50 MG, QWK
     Dates: start: 20110505
  11. FOLIC ACID [Concomitant]
     Dosage: 1 MG, QD
  12. OMEGA 3                            /01334101/ [Concomitant]
  13. BIO-CAL [Concomitant]

REACTIONS (14)
  - NAUSEA [None]
  - INJECTION SITE HAEMATOMA [None]
  - MUSCULOSKELETAL CHEST PAIN [None]
  - ABDOMINAL PAIN [None]
  - DYSPNOEA [None]
  - VOMITING [None]
  - FEELING ABNORMAL [None]
  - PARAESTHESIA [None]
  - COGNITIVE DISORDER [None]
  - SLEEP DISORDER [None]
  - FIBROMYALGIA [None]
  - MALAISE [None]
  - DEPRESSION [None]
  - PYREXIA [None]
